FAERS Safety Report 6873081-3 (Version None)
Quarter: 2010Q3

REPORT INFORMATION
  Report Type: 
  Country: None (occurrence: None)
  Receive Date: 20100723
  Receipt Date: 20090318
  Transmission Date: 20110219
  Serious: No
  Sender: FDA-Public Use
  Company Number: US-PFIZER INC-2008088340

PATIENT
  Sex: Male
  Weight: 61.2 kg

DRUGS (2)
  1. CHANTIX [Suspect]
     Indication: SMOKING CESSATION THERAPY
     Dosage: UNK
  2. LEXAPRO [Concomitant]
     Dosage: UNK

REACTIONS (8)
  - ABNORMAL DREAMS [None]
  - AFFECTIVE DISORDER [None]
  - ANGER [None]
  - CONSTIPATION [None]
  - FRUSTRATION [None]
  - HEADACHE [None]
  - MUSCLE SPASMS [None]
  - THINKING ABNORMAL [None]
